FAERS Safety Report 10793381 (Version 2)
Quarter: 2015Q1

REPORT INFORMATION
  Report Type: Spontaneous
  Country: GB (occurrence: GB)
  Receive Date: 20150213
  Receipt Date: 20150312
  Transmission Date: 20150721
  Serious: Yes (Other)
  Sender: FDA-Public Use
  Company Number: GB-JNJFOC-20150206069

PATIENT
  Age: 54 Year
  Sex: Female

DRUGS (3)
  1. TRIAMCINOLONE [Interacting]
     Active Substance: TRIAMCINOLONE
     Indication: CARPAL TUNNEL SYNDROME
     Route: 014
     Dates: start: 201412
  2. DARUNAVIR [Suspect]
     Active Substance: DARUNAVIR
     Indication: PRODUCT USED FOR UNKNOWN INDICATION
     Route: 048
  3. RITONAVIR. [Suspect]
     Active Substance: RITONAVIR
     Indication: HIV INFECTION
     Route: 065

REACTIONS (2)
  - Cushing^s syndrome [Recovered/Resolved]
  - Drug interaction [Recovering/Resolving]

NARRATIVE: CASE EVENT DATE: 201412
